FAERS Safety Report 6881689-4 (Version None)
Quarter: 2010Q3

REPORT INFORMATION
  Report Type: 
  Country: None (occurrence: None)
  Receive Date: 20100729
  Receipt Date: 20100720
  Transmission Date: 20110219
  Serious: No
  Sender: FDA-Public Use
  Company Number: US-BIOGENIDEC-2010BI025306

PATIENT
  Sex: Female

DRUGS (3)
  1. TYSABRI [Suspect]
     Indication: MULTIPLE SCLEROSIS
     Route: 042
     Dates: start: 20080101
  2. TYSABRI [Suspect]
     Route: 042
  3. TYSABRI [Suspect]
     Route: 042

REACTIONS (1)
  - MULTIPLE SCLEROSIS [None]
